FAERS Safety Report 25980804 (Version 2)
Quarter: 2025Q4

REPORT INFORMATION
  Report Type: Spontaneous
  Country: EU (occurrence: EU)
  Receive Date: 20251030
  Receipt Date: 20251120
  Transmission Date: 20260118
  Serious: Yes (Other)
  Sender: MERCK SHARP & DOHME LLC
  Company Number: None

PATIENT
  Age: 53 Year
  Sex: Male

DRUGS (4)
  1. DELSTRIGO [Suspect]
     Active Substance: DORAVIRINE\LAMIVUDINE\TENOFOVIR DISOPROXIL FUMARATE
     Indication: HIV infection
     Dosage: 100 MG/300 MG/245 MG, NR
     Route: 048
     Dates: start: 202103, end: 202409
  2. VOCABRIA [Suspect]
     Active Substance: CABOTEGRAVIR SODIUM
     Indication: HIV infection
     Dosage: 600 MG, NR
     Route: 030
     Dates: start: 202409
  3. ODEFSEY [Suspect]
     Active Substance: EMTRICITABINE\RILPIVIRINE HYDROCHLORIDE\TENOFOVIR ALAFENAMIDE FUMARATE
     Indication: HIV infection
     Dosage: 200 MG/25 MG/25 MG, NR
     Route: 048
     Dates: start: 201804, end: 202103
  4. RILPIVIRINE [Suspect]
     Active Substance: RILPIVIRINE
     Indication: HIV infection
     Dosage: 900 MG, NR
     Route: 030
     Dates: start: 202409

REACTIONS (1)
  - Maculopathy [Unknown]

NARRATIVE: CASE EVENT DATE: 20250211
